FAERS Safety Report 20064902 (Version 2)
Quarter: 2021Q4

REPORT INFORMATION
  Report Type: Report from Study
  Country: CA (occurrence: CA)
  Receive Date: 20211112
  Receipt Date: 20211231
  Transmission Date: 20220304
  Serious: Yes (Death, Other)
  Sender: FDA-Public Use
  Company Number: CA-ABBVIE-21K-028-4158227-00

PATIENT
  Sex: Male

DRUGS (3)
  1. VENCLEXTA [Suspect]
     Active Substance: VENETOCLAX
     Indication: Acute myeloid leukaemia
     Route: 048
     Dates: start: 20210915, end: 20211031
  2. POSACONAZOLE [Concomitant]
     Active Substance: POSACONAZOLE
     Indication: Antifungal prophylaxis
     Route: 048
     Dates: start: 20211012, end: 20211031
  3. CYTARABINE [Concomitant]
     Active Substance: CYTARABINE
     Indication: Acute myeloid leukaemia
     Route: 058
     Dates: start: 20211012, end: 20211021

REACTIONS (6)
  - Pneumonia [Fatal]
  - Myocardial infarction [Fatal]
  - Haemolysis [Unknown]
  - Lung infiltration [Unknown]
  - Electrocardiogram ST segment depression [Unknown]
  - Troponin increased [Unknown]

NARRATIVE: CASE EVENT DATE: 20210101
